FAERS Safety Report 21793705 (Version 1)
Quarter: 2022Q4

REPORT INFORMATION
  Report Type: Spontaneous
  Country: JP (occurrence: JP)
  Receive Date: 20221229
  Receipt Date: 20221229
  Transmission Date: 20230113
  Serious: Yes (Hospitalization)
  Sender: FDA-Public Use
  Company Number: JP-CELLTRION INC.-2022JP021719

PATIENT

DRUGS (8)
  1. INFLIXIMAB [Suspect]
     Active Substance: INFLIXIMAB
     Indication: Acute generalised exanthematous pustulosis
     Dosage: 300 MILLIGRAM, QD
     Route: 064
  2. PREDNISOLONE [Concomitant]
     Active Substance: PREDNISOLONE
     Dosage: 30 MILLIGRAM, DAILY ( INDUCTION THERAPY)
     Route: 064
  3. PREDNISOLONE [Concomitant]
     Active Substance: PREDNISOLONE
     Dosage: 10 MG DAILY AT THE TIME OF CONCEPTION
     Route: 064
  4. PREDNISOLONE [Concomitant]
     Active Substance: PREDNISOLONE
     Dosage: PSL DOSAGE WAS INCREASED TO 20 MG DAILY
  5. PREDNISOLONE [Concomitant]
     Active Substance: PREDNISOLONE
     Dosage: DISCONTINUED HCQ, RESTART TAC AND INCREASED THE DOSAGE OF PSL TO 30 MG DAILY
     Route: 064
  6. PREDNISOLONE [Concomitant]
     Active Substance: PREDNISOLONE
     Dosage: AFTER ONE COURSE OF IFX TREATMENT(300 MG/BODY), WERE ABLE TO REDUCE THE PSL DOSAGE TO 20 MG/DAY
     Route: 064
  7. TACROLIMUS [Concomitant]
     Active Substance: TACROLIMUS
     Dosage: 3 MILLIGRAM, DAILY
     Route: 064
  8. HYDROXYCHLOROQUINE [Concomitant]
     Active Substance: HYDROXYCHLOROQUINE
     Dosage: HCQ(300 MG DAILY) WAS STARTED AT 20 WEEKS, PARTIALLY TO ALLOW FOR A REDUCTION IN THE PSL
     Route: 064

REACTIONS (4)
  - Premature baby [Unknown]
  - Low birth weight baby [Unknown]
  - Foetal exposure during pregnancy [Unknown]
  - Off label use [Unknown]
